FAERS Safety Report 15813604 (Version 1)
Quarter: 2019Q1

REPORT INFORMATION
  Report Type: Spontaneous
  Country: US (occurrence: US)
  Receive Date: 20190111
  Receipt Date: 20190111
  Transmission Date: 20190417
  Serious: Yes (Hospitalization, Disabling)
  Sender: FDA-Public Use
  Company Number: None

PATIENT
  Age: 20 Year
  Sex: Female
  Weight: 56.25 kg

DRUGS (1)
  1. CVS HEALTH SINUS RELIEF [Suspect]
     Active Substance: OXYMETAZOLINE HYDROCHLORIDE
     Indication: SINUS CONGESTION
     Route: 058
     Dates: start: 20180816, end: 20180820

REACTIONS (7)
  - Pyrexia [None]
  - Headache [None]
  - Gastric disorder [None]
  - Condition aggravated [None]
  - Secretion discharge [None]
  - Postoperative stitch sinus [None]
  - Sinus pain [None]

NARRATIVE: CASE EVENT DATE: 20180820
